FAERS Safety Report 4777410-6 (Version None)
Quarter: 2005Q3

REPORT INFORMATION
  Report Type: 
  Country: None (occurrence: None)
  Receive Date: 20050923
  Receipt Date: 20050916
  Transmission Date: 20060218
  Serious: Yes (Hospitalization)
  Sender: FDA-Public Use
  Company Number: PHBS2005JP13586

PATIENT
  Age: 78 Year
  Sex: Female

DRUGS (7)
  1. STARSIS [Suspect]
     Indication: DIABETES MELLITUS NON-INSULIN-DEPENDENT
     Dosage: 180 MG, UNK
     Route: 048
     Dates: start: 20050708, end: 20050902
  2. ROCALTROL [Suspect]
     Dosage: 0.5 UG, QD
     Route: 048
     Dates: start: 20040724
  3. SELBEX [Suspect]
     Dosage: 150 MG, QD
     Route: 048
     Dates: end: 20050908
  4. PROHEPARUM [Suspect]
     Dosage: 3 DF, QD
     Route: 048
     Dates: end: 20050908
  5. DEPAS [Suspect]
     Dosage: 0.5 MG, QD
     Route: 048
     Dates: end: 20050908
  6. MAGNESIUM OXIDE [Suspect]
     Dosage: 1 G, QD
     Route: 048
  7. TOUGHMAC E [Suspect]
     Dosage: 3 DF, QD
     Route: 048
     Dates: end: 20050908

REACTIONS (1)
  - ASPARTATE AMINOTRANSFERASE INCREASED [None]
